FAERS Safety Report 6085123-6 (Version None)
Quarter: 2009Q1

REPORT INFORMATION
  Report Type: 
  Country: None (occurrence: None)
  Receive Date: 20090220
  Receipt Date: 20090213
  Transmission Date: 20090719
  Serious: Yes (Other)
  Sender: FDA-Public Use
  Company Number: PHHY2008JP32019

PATIENT
  Sex: Female
  Weight: 60 kg

DRUGS (4)
  1. ZOMETA [Suspect]
     Indication: METASTASES TO BONE
     Dosage: 4 MG, UNK
     Route: 042
     Dates: start: 20060628, end: 20080101
  2. AREDIA [Suspect]
     Indication: METASTASES TO BONE
     Dosage: 90 MG, UNK
     Route: 042
     Dates: start: 20060208, end: 20060501
  3. DECADRON [Concomitant]
  4. TAXOTERE [Concomitant]

REACTIONS (14)
  - BONE DISORDER [None]
  - BONE LESION [None]
  - DENTAL FISTULA [None]
  - GINGIVAL SWELLING [None]
  - INCISIONAL DRAINAGE [None]
  - JAW DISORDER [None]
  - JAW OPERATION [None]
  - OSTEITIS [None]
  - OSTEOMYELITIS [None]
  - OSTEONECROSIS [None]
  - TOOTH ABSCESS [None]
  - TOOTH DISORDER [None]
  - TOOTH EXTRACTION [None]
  - TOOTHACHE [None]
